FAERS Safety Report 7348861-0 (Version None)
Quarter: 2011Q1

REPORT INFORMATION
  Report Type: 
  Country: None (occurrence: None)
  Receive Date: 20110225
  Receipt Date: 20101209
  Transmission Date: 20110831
  Serious: Yes (Hospitalization)
  Sender: FDA-Public Use
  Company Number: 319818

PATIENT
  Age: 62 Year
  Sex: Female

DRUGS (10)
  1. VICTOZA [Suspect]
     Indication: TYPE 2 DIABETES MELLITUS
     Dosage: 1.8 MG, QD, SUBCUTANEOUS
     Route: 058
     Dates: start: 20100525, end: 20101123
  2. INDAPAMIDE [Concomitant]
  3. BENICAR [Concomitant]
  4. GABAPENTIN [Concomitant]
  5. ATENOLOL [Concomitant]
  6. FORTAMET [Concomitant]
  7. EFFEXOR [Concomitant]
  8. EVISTA [Concomitant]
  9. XANAX [Concomitant]
  10. TRAZODONE (TRAZODONE) [Concomitant]

REACTIONS (1)
  - PANCREATITIS ACUTE [None]
